FAERS Safety Report 19451909 (Version 1)
Quarter: 2021Q2

REPORT INFORMATION
  Report Type: Report from Study
  Country: AU (occurrence: AU)
  Receive Date: 20210623
  Receipt Date: 20210623
  Transmission Date: 20210717
  Serious: Yes (Hospitalization)
  Sender: FDA-Public Use
  Company Number: AU-CELLTRION INC.-2021AU008238

PATIENT

DRUGS (2)
  1. REMSIMA [Suspect]
     Active Substance: INFLIXIMAB
     Dosage: 120 MG, EVERY 2 WEEKS
     Route: 058
     Dates: start: 20210531, end: 20210531
  2. REMSIMA [Suspect]
     Active Substance: INFLIXIMAB
     Indication: COLITIS ULCERATIVE
     Dosage: 120 MG, EVERY 2 WEEKS
     Route: 058
     Dates: start: 20210517, end: 20210517

REACTIONS (9)
  - Dementia [Unknown]
  - Pain [Unknown]
  - Pollakiuria [Unknown]
  - Muscular weakness [Unknown]
  - Poor quality sleep [Unknown]
  - Insomnia [Unknown]
  - General physical health deterioration [Unknown]
  - Gait inability [Unknown]
  - Product dose omission issue [Unknown]

NARRATIVE: CASE EVENT DATE: 20210518
